FAERS Safety Report 9819702 (Version 1)
Quarter: 2014Q1

REPORT INFORMATION
  Report Type: Spontaneous
  Country: US (occurrence: US)
  Receive Date: 20140115
  Receipt Date: 20140115
  Transmission Date: 20141002
  Serious: No
  Sender: FDA-Public Use
  Company Number: US-ALLERGAN-1315912US

PATIENT
  Age: 47 Year
  Sex: Female

DRUGS (1)
  1. PRED FORTE [Suspect]
     Indication: EPISCLERITIS
     Dosage: 1 GTT, Q2HR
     Route: 047
     Dates: start: 20131007, end: 20131009

REACTIONS (8)
  - Ocular hyperaemia [Unknown]
  - Eye inflammation [Unknown]
  - Scleral disorder [Unknown]
  - Facial pain [Unknown]
  - Reaction to preservatives [Unknown]
  - Headache [Unknown]
  - Headache [Unknown]
  - Headache [Unknown]
